FAERS Safety Report 11503481 (Version 1)
Quarter: 2015Q3

REPORT INFORMATION
  Report Type: Spontaneous
  Country: US (occurrence: US)
  Receive Date: 20150914
  Receipt Date: 20150914
  Transmission Date: 20151125
  Serious: No
  Sender: FDA-Public Use
  Company Number: US-ASTELLAS-2015US025404

PATIENT
  Age: 57 Year
  Sex: Male

DRUGS (1)
  1. XTANDI [Suspect]
     Active Substance: ENZALUTAMIDE
     Indication: PANCREATIC CARCINOMA
     Route: 065

REACTIONS (5)
  - Off label use [Unknown]
  - Epistaxis [Unknown]
  - Decreased appetite [Unknown]
  - Haematemesis [Unknown]
  - Nausea [Unknown]
